FAERS Safety Report 9398185 (Version 5)
Quarter: 2013Q3

REPORT INFORMATION
  Report Type: Report from Study
  Country: IE (occurrence: IE)
  Receive Date: 20130712
  Receipt Date: 20130912
  Transmission Date: 20140515
  Serious: Yes (Death, Hospitalization, Disabling)
  Sender: FDA-Public Use
  Company Number: IE-BAYER-2013-079236

PATIENT
  Age: 66 Year
  Sex: Male

DRUGS (1)
  1. NEXAVAR [Suspect]
     Indication: HEPATOCELLULAR CARCINOMA
     Dosage: 200 MG, BID
     Route: 048
     Dates: start: 20130617

REACTIONS (8)
  - Death [Fatal]
  - Dyspnoea [None]
  - Arthritis [None]
  - Arthralgia [None]
  - Gait disturbance [None]
  - Fatigue [None]
  - Liver disorder [None]
  - Diarrhoea [None]
